FAERS Safety Report 8297220-5 (Version None)
Quarter: 2012Q2

REPORT INFORMATION
  Report Type: 
  Country: None (occurrence: None)
  Receive Date: 20120419
  Receipt Date: 20120411
  Transmission Date: 20120825
  Serious: Yes (Hospitalization)
  Sender: FDA-Public Use
  Company Number: US-BAYER-2011-112019

PATIENT
  Age: 53 Year
  Sex: Female
  Weight: 61.678 kg

DRUGS (9)
  1. YAZ [Suspect]
     Indication: MENOPAUSAL SYMPTOMS
     Dosage: UNK
     Dates: start: 20071219, end: 20080123
  2. MOTRIN [Concomitant]
     Indication: PAIN
     Dosage: 800 MG, QD
     Route: 048
     Dates: start: 20080123
  3. NAPROXEN (ALEVE) [Concomitant]
     Dosage: 220 MG, PRN
     Route: 048
  4. MARIJUANA [Concomitant]
  5. VICODIN [Concomitant]
     Indication: PAIN
     Route: 048
  6. MULTIPLE VITAMINS [Concomitant]
     Route: 048
  7. CALCIUM CARBONATE [Concomitant]
     Dosage: UNK UNK, PRN
     Route: 048
  8. CALCIUM D [Concomitant]
     Dosage: UNK UNK, BID
     Route: 048
  9. XANAX [Concomitant]
     Indication: ANXIETY
     Dosage: 0.5 MG, QID
     Route: 048
     Dates: start: 20070801, end: 20090601

REACTIONS (7)
  - FEAR [None]
  - EMOTIONAL DISTRESS [None]
  - PAIN IN EXTREMITY [None]
  - MUSCULOSKELETAL PAIN [None]
  - DEEP VEIN THROMBOSIS [None]
  - INJURY [None]
  - ANXIETY [None]
